FAERS Safety Report 15299124 (Version 2)
Quarter: 2018Q3

REPORT INFORMATION
  Report Type: Spontaneous
  Country: SE (occurrence: SE)
  Receive Date: 20180821
  Receipt Date: 20180924
  Transmission Date: 20181010
  Serious: Yes (Hospitalization)
  Sender: FDA-Public Use
  Company Number: SE-ROCHE-2170735

PATIENT

DRUGS (3)
  1. ALVEDON [Concomitant]
     Active Substance: ACETAMINOPHEN
     Route: 065
  2. ATEZOLIZUMAB. [Suspect]
     Active Substance: ATEZOLIZUMAB
     Indication: PRODUCT USED FOR UNKNOWN INDICATION
     Dosage: PATIENT HAD RECEIVED 3 INFUSIONS. 12/JUN/2018, 04/JUL/2018, 25/JUL/2018
     Route: 042
     Dates: start: 20180612, end: 20180725
  3. FRAGMIN [Concomitant]
     Active Substance: DALTEPARIN SODIUM
     Route: 065

REACTIONS (5)
  - Memory impairment [Unknown]
  - Aphasia [Not Recovered/Not Resolved]
  - Apraxia [Unknown]
  - Nuclear magnetic resonance imaging brain abnormal [Not Recovered/Not Resolved]
  - Confusional state [Not Recovered/Not Resolved]

NARRATIVE: CASE EVENT DATE: 20180731
